FAERS Safety Report 13168390 (Version 3)
Quarter: 2017Q2

REPORT INFORMATION
  Report Type: Spontaneous
  Country: US (occurrence: US)
  Receive Date: 20170131
  Receipt Date: 20170404
  Transmission Date: 20170830
  Serious: Yes (Other)
  Sender: FDA-Public Use
  Company Number: US-PFIZER INC-2017040102

PATIENT
  Age: 63 Year
  Sex: Female

DRUGS (2)
  1. LORAZEPAM ACTAVIS [Suspect]
     Active Substance: LORAZEPAM
     Indication: ANXIETY
     Dosage: 1 MG, 4X/DAY
     Dates: start: 2005
  2. GLUTEN [Interacting]
     Active Substance: WHEAT GLUTEN
     Dosage: UNK

REACTIONS (2)
  - Coeliac disease [Not Recovered/Not Resolved]
  - Reaction to drug excipients [Unknown]
